FAERS Safety Report 4373761-8 (Version None)
Quarter: 2004Q2

REPORT INFORMATION
  Report Type: 
  Country: None (occurrence: None)
  Receive Date: 20040607
  Receipt Date: 20040607
  Transmission Date: 20050107
  Serious: Yes (Hospitalization)
  Sender: FDA-Public Use
  Company Number: None

PATIENT
  Sex: Male

DRUGS (3)
  1. KEPPRA [Suspect]
     Indication: CONVULSION
     Dosage: 500 MG BID ORAL
     Route: 048
     Dates: start: 20040407, end: 20040517
  2. ZYPREXA [Suspect]
     Indication: AGGRESSION
     Dosage: 20 MG QD ORAL
     Route: 048
     Dates: start: 20040423, end: 20040517
  3. ZYPREXA [Suspect]
     Indication: AGITATION
     Dosage: 20 MG QD ORAL
     Route: 048
     Dates: start: 20040423, end: 20040517

REACTIONS (1)
  - PANCYTOPENIA [None]
